FAERS Safety Report 7497679-7 (Version None)
Quarter: 2011Q2

REPORT INFORMATION
  Report Type: 
  Country: None (occurrence: None)
  Receive Date: 20110523
  Receipt Date: 20110513
  Transmission Date: 20111010
  Serious: Yes (Other)
  Sender: FDA-Public Use
  Company Number: US-AMGEN-USASP2011025000

PATIENT
  Age: 60 Year
  Sex: Female

DRUGS (1)
  1. ENBREL [Suspect]
     Indication: RHEUMATOID ARTHRITIS
     Dosage: 50 MG, QWK
     Dates: start: 20110330, end: 20110401

REACTIONS (5)
  - PNEUMONIA [None]
  - ELECTROCARDIOGRAM ABNORMAL [None]
  - SINUSITIS [None]
  - BLOOD PRESSURE INCREASED [None]
  - PLEURISY [None]
